FAERS Safety Report 18339454 (Version 1)
Quarter: 2020Q4

REPORT INFORMATION
  Report Type: Spontaneous
  Country: DE (occurrence: DE)
  Receive Date: 20201002
  Receipt Date: 20201002
  Transmission Date: 20210113
  Serious: Yes (Other)
  Sender: FDA-Public Use
  Company Number: DE-PFIZER INC-2020378630

PATIENT

DRUGS (1)
  1. CYTOTEC [Suspect]
     Active Substance: MISOPROSTOL
     Indication: LABOUR INDUCTION
     Dosage: UNK
     Route: 064
     Dates: start: 19950103

REACTIONS (4)
  - Foetal exposure during pregnancy [Unknown]
  - Electrolyte imbalance [Recovered/Resolved with Sequelae]
  - Neonatal hypoxia [Recovered/Resolved with Sequelae]
  - Apgar score abnormal [Recovered/Resolved with Sequelae]

NARRATIVE: CASE EVENT DATE: 19950103
